FAERS Safety Report 10562614 (Version 1)
Quarter: 2014Q4

REPORT INFORMATION
  Report Type: Spontaneous
  Country: US (occurrence: None)
  Receive Date: 20141103
  Receipt Date: 20141103
  Transmission Date: 20150529
  Serious: No
  Sender: FDA-Public Use
  Company Number: None

PATIENT
  Age: 57 Year
  Sex: Male

DRUGS (1)
  1. OTEZLA [Suspect]
     Active Substance: APREMILAST
     Dosage: 1 TAB BID ORAL
     Route: 048
     Dates: start: 20141024, end: 20141030

REACTIONS (2)
  - Diarrhoea [None]
  - Tremor [None]

NARRATIVE: CASE EVENT DATE: 20141030
